FAERS Safety Report 23234058 (Version 1)
Quarter: 2023Q4

REPORT INFORMATION
  Report Type: Spontaneous
  Country: US (occurrence: None)
  Receive Date: 20231128
  Receipt Date: 20231128
  Transmission Date: 20240110
  Serious: Yes (Other)
  Sender: FDA-Public Use
  Company Number: US-ROCHE-3452257

PATIENT
  Age: 65 Year
  Sex: Female

DRUGS (2)
  1. VABYSMO [Suspect]
     Active Substance: FARICIMAB\FARICIMAB-SVOA
     Indication: Diabetic retinal oedema
     Route: 050
     Dates: start: 20230605, end: 20231024
  2. LUCENTIS [Suspect]
     Active Substance: RANIBIZUMAB
     Indication: Product used for unknown indication
     Route: 065

REACTIONS (7)
  - Inflammation [Unknown]
  - Vitreous floaters [Recovering/Resolving]
  - Eye inflammation [Recovered/Resolved]
  - Vision blurred [Unknown]
  - Intraocular pressure increased [Recovering/Resolving]
  - Vitreal cells [Recovering/Resolving]
  - Keratic precipitates [Recovering/Resolving]

NARRATIVE: CASE EVENT DATE: 20231030
